FAERS Safety Report 9967180 (Version 1)
Quarter: 2014Q1

REPORT INFORMATION
  Report Type: Report from Study
  Country: US (occurrence: US)
  Receive Date: 20140305
  Receipt Date: 20140305
  Transmission Date: 20141002
  Serious: Yes (Hospitalization)
  Sender: FDA-Public Use
  Company Number: US-ABBVIE-13P-163-1139775-00

PATIENT
  Age: 34 Year
  Sex: Male
  Weight: 136.2 kg

DRUGS (11)
  1. HUMIRA [Suspect]
     Indication: CROHN^S DISEASE
     Dates: start: 2011
  2. UNKNOWN ANTIBIOTIC [Suspect]
     Indication: STAPHYLOCOCCAL INFECTION
     Dates: start: 201305
  3. KALETRA [Concomitant]
     Indication: HIV TEST POSITIVE
  4. TRUVADA [Concomitant]
     Indication: HIV TEST POSITIVE
  5. IMURAN [Concomitant]
     Indication: CROHN^S DISEASE
  6. CYMBALTA [Concomitant]
     Indication: DEPRESSION
  7. NORCO [Concomitant]
     Indication: PAIN
  8. TRAMADOL [Concomitant]
     Indication: PAIN
  9. DICYCLOMINE [Concomitant]
     Indication: CROHN^S DISEASE
  10. MS CONTIN [Concomitant]
     Indication: PAIN
  11. TRAZODONE [Concomitant]
     Indication: DEPRESSION

REACTIONS (4)
  - Abdominal pain [Recovered/Resolved]
  - Fatigue [Recovered/Resolved]
  - Staphylococcal infection [Recovered/Resolved]
  - Diarrhoea [Recovered/Resolved]
